FAERS Safety Report 8365532-2 (Version None)
Quarter: 2012Q2

REPORT INFORMATION
  Report Type: 
  Country: None (occurrence: None)
  Receive Date: 20120516
  Receipt Date: 20120504
  Transmission Date: 20120825
  Serious: Yes (Other)
  Sender: FDA-Public Use
  Company Number: US-ELI_LILLY_AND_COMPANY-US201205002396

PATIENT
  Age: 59 Year
  Sex: Male

DRUGS (1)
  1. PROZAC [Suspect]

REACTIONS (1)
  - CARDIAC DISORDER [None]
